FAERS Safety Report 18314047 (Version 1)
Quarter: 2020Q3

REPORT INFORMATION
  Report Type: Spontaneous
  Country: CN (occurrence: CN)
  Receive Date: 20200925
  Receipt Date: 20200925
  Transmission Date: 20201103
  Serious: Yes (Other)
  Sender: FDA-Public Use
  Company Number: CN-ASTRAZENECA-2020SF17547

PATIENT
  Age: 62 Year
  Sex: Female
  Weight: 55 kg

DRUGS (2)
  1. TROXERUTIN [Concomitant]
     Active Substance: TROXERUTIN
     Indication: HYPERTENSION
  2. IRESSA [Suspect]
     Active Substance: GEFITINIB
     Indication: NON-SMALL CELL LUNG CANCER
     Route: 048
     Dates: end: 2020

REACTIONS (2)
  - Cerebral disorder [Unknown]
  - Drug resistance [Unknown]

NARRATIVE: CASE EVENT DATE: 2020
